FAERS Safety Report 9298734 (Version 3)
Quarter: 2014Q1

REPORT INFORMATION
  Report Type: Spontaneous
  Country: FR (occurrence: FR)
  Receive Date: 20130520
  Receipt Date: 20140312
  Transmission Date: 20141002
  Serious: Yes (Other)
  Sender: FDA-Public Use
  Company Number: FR-TEVA-387305ISR

PATIENT
  Age: 44 Year
  Sex: Male
  Weight: 84 kg

DRUGS (1)
  1. COPAXONE [Suspect]
     Indication: MULTIPLE SCLEROSIS
     Dosage: 20 MG/ML DAILY;
     Route: 058
     Dates: start: 20130212

REACTIONS (28)
  - Feeling hot [Recovered/Resolved]
  - Injection site pain [Recovering/Resolving]
  - Acute tonsillitis [Unknown]
  - Injection site reaction [Not Recovered/Not Resolved]
  - Injection site haemorrhage [Unknown]
  - Injection site erythema [Unknown]
  - Palpitations [Recovered/Resolved]
  - Injection site swelling [Recovering/Resolving]
  - Injection site pruritus [Unknown]
  - Injection site mass [Unknown]
  - Dyspnoea [Unknown]
  - Fatigue [Unknown]
  - Dizziness [Unknown]
  - Gait disturbance [Recovered/Resolved]
  - Lymphadenopathy [Recovered/Resolved]
  - Weight decreased [Unknown]
  - Pain [Unknown]
  - Eczema [Unknown]
  - Rash [Unknown]
  - Papule [Unknown]
  - Impetigo [Unknown]
  - Ear pain [Recovered/Resolved]
  - Rash [Recovered/Resolved]
  - Injection site vesicles [Unknown]
  - Hypersensitivity [Unknown]
  - Solar lentigo [Unknown]
  - Pain [Unknown]
  - Myalgia [Unknown]
